FAERS Safety Report 16758525 (Version 1)
Quarter: 2019Q3

REPORT INFORMATION
  Report Type: Spontaneous
  Country: US (occurrence: US)
  Receive Date: 20190830
  Receipt Date: 20190830
  Transmission Date: 20191005
  Serious: Yes (Other)
  Sender: FDA-Public Use
  Company Number: US-BAYER-2019-157311

PATIENT
  Age: 60 Year
  Sex: Female
  Weight: 64 kg

DRUGS (3)
  1. MIRALAX [Suspect]
     Active Substance: POLYETHYLENE GLYCOL 3350
     Indication: NEUROGENIC BOWEL
     Dosage: 1 DF
     Route: 048
     Dates: start: 2015
  2. VITAMINS NOS [Concomitant]
     Active Substance: VITAMINS
  3. MIRALAX [Suspect]
     Active Substance: POLYETHYLENE GLYCOL 3350
     Indication: NEUROGENIC BOWEL
     Dosage: 1 DF (1 CAP FULL IN 8OZ WATER DOSE  )
     Route: 048
     Dates: start: 20190824

REACTIONS (4)
  - Product taste abnormal [None]
  - Drug ineffective for unapproved indication [Unknown]
  - Product solubility abnormal [None]
  - Drug dependence [Unknown]
